FAERS Safety Report 9868151 (Version 2)
Quarter: 2014Q1

REPORT INFORMATION
  Report Type: Spontaneous
  Country: CH (occurrence: CH)
  Receive Date: 20140204
  Receipt Date: 20140204
  Transmission Date: 20141002
  Serious: Yes (Other)
  Sender: FDA-Public Use
  Company Number: PHHY2012CH052558

PATIENT
  Age: 45 Year
  Sex: Female

DRUGS (3)
  1. TEGRETOL [Suspect]
     Indication: EPILEPSY
     Dosage: 400 MG, TID
     Route: 048
  2. DEPAKINE CHRONO [Suspect]
     Indication: EPILEPSY
     Dosage: 500 MG, QD
     Route: 048
     Dates: end: 20120417
  3. FLUCTINE [Suspect]
     Dosage: UNK UKN, UNK

REACTIONS (2)
  - Foetal death [Unknown]
  - Maternal exposure during pregnancy [Unknown]
